FAERS Safety Report 10041561 (Version 2)
Quarter: 2014Q2

REPORT INFORMATION
  Report Type: Spontaneous
  Country: IE (occurrence: IE)
  Receive Date: 20140327
  Receipt Date: 20140528
  Transmission Date: 20141212
  Serious: Yes (Life-Threatening, Other)
  Sender: FDA-Public Use
  Company Number: IE-NOVOPROD-403622

PATIENT
  Sex: Male
  Weight: 90 kg

DRUGS (8)
  1. VICTOZA [Suspect]
     Indication: DIABETES MELLITUS
     Dosage: 1.8 MG, QD
     Route: 058
     Dates: start: 201102
  2. VICTOZA [Suspect]
     Indication: DIABETES MELLITUS INADEQUATE CONTROL
  3. LIPITOR [Concomitant]
     Dosage: 40 MG, QD
     Route: 065
  4. LANTUS [Concomitant]
     Dosage: 12 IU, QD
     Route: 065
  5. METFORMIN [Concomitant]
     Dosage: 850 MG, TID
     Route: 065
  6. GLICLAZIDE [Concomitant]
     Dosage: 120 MG, QD
     Route: 065
  7. ASPIRIN NUSEALS [Concomitant]
     Dosage: 75 MG, QD
     Route: 065
  8. TRITACE [Concomitant]
     Dosage: 2.5 MG, QD
     Route: 065

REACTIONS (1)
  - Pancreatic carcinoma metastatic [Not Recovered/Not Resolved]
